FAERS Safety Report 10227912 (Version 1)
Quarter: 2014Q2

REPORT INFORMATION
  Report Type: Spontaneous
  Country: CN (occurrence: CN)
  Receive Date: 20140610
  Receipt Date: 20140610
  Transmission Date: 20141212
  Serious: Yes (Hospitalization)
  Sender: FDA-Public Use
  Company Number: CN-ASTRAZENECA-2014SE40283

PATIENT
  Sex: Female
  Weight: 68.5 kg

DRUGS (6)
  1. ROSUVASTATIN CALCIUM [Suspect]
     Indication: HYPERLIPIDAEMIA
     Route: 048
     Dates: start: 20130913, end: 20131128
  2. SIMVASTATIN [Suspect]
     Indication: HYPERLIPIDAEMIA
     Route: 048
     Dates: start: 20130107, end: 20131209
  3. COMPOUND AMINO ACID [Concomitant]
     Indication: ANAEMIA
     Route: 048
     Dates: start: 20130815, end: 20131128
  4. FOLIC ACID [Concomitant]
     Indication: ANAEMIA
     Route: 048
     Dates: start: 20130815, end: 20131114
  5. IRON POLYSACHARIDE COMPLEX [Concomitant]
     Indication: ANAEMIA
     Route: 048
     Dates: start: 20130815, end: 20131128
  6. MECOBALAMIN [Concomitant]
     Indication: LACUNAR INFARCTION
     Route: 048
     Dates: start: 20130822, end: 20131128

REACTIONS (2)
  - Rhabdomyolysis [Recovering/Resolving]
  - Fatigue [Recovering/Resolving]
